FAERS Safety Report 10561232 (Version 3)
Quarter: 2015Q2

REPORT INFORMATION
  Report Type: Spontaneous
  Country: CA (occurrence: CA)
  Receive Date: 20141103
  Receipt Date: 20150603
  Transmission Date: 20150821
  Serious: Yes (Other)
  Sender: FDA-Public Use
  Company Number: CA-SA-2014SA145896

PATIENT
  Age: 67 Year
  Sex: Male
  Weight: 80.5 kg

DRUGS (11)
  1. 5-FU [Concomitant]
     Active Substance: FLUOROURACIL
     Dates: start: 201211
  2. LEUCOVORIN [Concomitant]
     Active Substance: LEUCOVORIN
     Dates: start: 201211
  3. IRINOTECAN [Concomitant]
     Active Substance: IRINOTECAN
  4. ELOXATIN [Concomitant]
     Active Substance: OXALIPLATIN
     Dates: start: 201211
  5. XELODA [Suspect]
     Active Substance: CAPECITABINE
     Indication: METASTATIC GASTRIC CANCER
     Route: 048
     Dates: start: 201208, end: 201210
  6. HERCEPTIN [Suspect]
     Active Substance: TRASTUZUMAB
     Indication: METASTATIC GASTRIC CANCER
     Route: 065
     Dates: start: 201211, end: 201410
  7. 5-FU [Concomitant]
     Active Substance: FLUOROURACIL
  8. TAXOTERE [Suspect]
     Active Substance: DOCETAXEL
     Indication: METASTATIC GASTRIC CANCER
     Route: 065
     Dates: start: 201208, end: 201210
  9. HERCEPTIN [Suspect]
     Active Substance: TRASTUZUMAB
     Indication: METASTATIC GASTRIC CANCER
     Route: 065
     Dates: start: 20110119, end: 201210
  10. HERCEPTIN [Suspect]
     Active Substance: TRASTUZUMAB
     Indication: METASTATIC GASTRIC CANCER
     Route: 042
     Dates: start: 201411
  11. LEUCOVORIN [Concomitant]
     Active Substance: LEUCOVORIN

REACTIONS (9)
  - Lymphopenia [Unknown]
  - Ejection fraction decreased [Recovering/Resolving]
  - Unevaluable event [Unknown]
  - Blood glucose abnormal [Unknown]
  - Device occlusion [Unknown]
  - Cardiac ventricular disorder [Unknown]
  - Gamma-glutamyltransferase increased [Unknown]
  - Pulmonary embolism [Unknown]
  - Haemoglobin abnormal [Unknown]

NARRATIVE: CASE EVENT DATE: 2014
